FAERS Safety Report 5071838-5 (Version None)
Quarter: 2006Q3

REPORT INFORMATION
  Report Type: 
  Country: None (occurrence: None)
  Receive Date: 20060801
  Receipt Date: 20060620
  Transmission Date: 20061208
  Serious: Yes (Hospitalization)
  Sender: FDA-Public Use
  Company Number: 200610699BFR

PATIENT
  Age: 16 Year
  Sex: Male

DRUGS (7)
  1. CIPROFLOXACIN [Suspect]
     Dosage: 1000 MG QD ORAL
     Route: 048
     Dates: start: 20060517, end: 20060522
  2. ROCEPHIN [Concomitant]
  3. FLAGYL [Concomitant]
  4. GENTAMICIN [Concomitant]
  5. TAZOCILLINE [Concomitant]
  6. ESKAZOLE [Concomitant]
  7. LOVENOX [Concomitant]

REACTIONS (6)
  - AGRANULOCYTOSIS [None]
  - CROSS SENSITIVITY REACTION [None]
  - LIVER ABSCESS [None]
  - NEUTROPENIA [None]
  - PLASMACYTOSIS [None]
  - THROMBOCYTOPENIA [None]
